FAERS Safety Report 6226925-2 (Version None)
Quarter: 2009Q2

REPORT INFORMATION
  Report Type: 
  Country: None (occurrence: None)
  Receive Date: 20090612
  Receipt Date: 20090601
  Transmission Date: 20091009
  Serious: Yes (Death, Other)
  Sender: FDA-Public Use
  Company Number: TR-BRISTOL-MYERS SQUIBB COMPANY-14657001

PATIENT
  Age: 55 Year
  Sex: Female

DRUGS (2)
  1. CEFEPIME [Suspect]
     Indication: FEBRILE NEUTROPENIA
  2. AMIKACIN SULFATE [Suspect]
     Indication: FEBRILE NEUTROPENIA

REACTIONS (2)
  - SEPSIS [None]
  - STATUS EPILEPTICUS [None]
